FAERS Safety Report 5202654-9 (Version None)
Quarter: 2006Q4

REPORT INFORMATION
  Report Type: 
  Country: None (occurrence: None)
  Receive Date: 20061018
  Receipt Date: 20050531
  Transmission Date: 20070319
  Serious: Yes (Hospitalization, Other)
  Sender: FDA-Public Use
  Company Number: PHEH2005US02818

PATIENT
  Age: 70 Year
  Sex: Female

DRUGS (8)
  1. ZOMETA [Suspect]
     Indication: METASTASES TO BONE
     Dosage: 3.5 MG/ONCE, INTRAVENOUS
     Route: 042
     Dates: start: 20050110
  2. BUSPAR [Concomitant]
  3. ASPIRIN [Concomitant]
  4. COMPAZINE [Concomitant]
  5. GEMZAR [Concomitant]
  6. CARBOPLATIN [Concomitant]
  7. LOPERAMIDE HCL [Concomitant]
  8. CHOLESTYRAMINE [Concomitant]

REACTIONS (6)
  - DIARRHOEA [None]
  - HYPOCALCAEMIA [None]
  - HYPOKALAEMIA [None]
  - HYPOMAGNESAEMIA [None]
  - NAUSEA [None]
  - VOMITING [None]
